FAERS Safety Report 15936090 (Version 1)
Quarter: 2019Q1

REPORT INFORMATION
  Report Type: Spontaneous
  Country: NL (occurrence: NL)
  Receive Date: 20190208
  Receipt Date: 20190208
  Transmission Date: 20190417
  Serious: Yes (Other)
  Sender: FDA-Public Use
  Company Number: NL-TEVA-2018-NL-992327

PATIENT
  Age: 73 Year
  Sex: Male
  Weight: 100 kg

DRUGS (20)
  1. TAMSULOSINE [Concomitant]
     Active Substance: TAMSULOSIN HYDROCHLORIDE
     Dosage: 0 MILLIGRAM DAILY; 1DD 0.4MG
  2. RIFAMPICINE [Suspect]
     Active Substance: RIFAMPIN
     Dosage: 2DD 450MG
     Dates: start: 20181025
  3. ACETYLSALICYLZUUR [Concomitant]
     Active Substance: ASPIRIN
     Dosage: 80 MILLIGRAM DAILY; 1 DD 80 MG
  4. PARACETAMOL [Concomitant]
     Active Substance: ACETAMINOPHEN
     Dosage: 4 DD 1 G
  5. LOSARTAN. [Concomitant]
     Active Substance: LOSARTAN
     Dosage: 2 DD 50 MG
  6. CLEMASTINE [Concomitant]
     Active Substance: CLEMASTINE
     Dosage: EENAMLIG
     Dates: start: 20181115
  7. PRAMIPEXOL [Concomitant]
     Active Substance: PRAMIPEXOLE
     Dosage: 0 MILLIGRAM DAILY; 1DD 0.75MG
  8. VANCOMYCINE POEDER VOOR INFUUS, 1000 MG (MILLIGRAM)VANCOMYCINE PDR V I [Suspect]
     Active Substance: VANCOMYCIN HYDROCHLORIDE
     Indication: DEVICE RELATED INFECTION
     Dosage: 3500MG/24H CONTINUOUS
     Route: 065
     Dates: start: 20181104, end: 20181117
  9. ZOPICLON [Concomitant]
     Active Substance: ZOPICLONE
     Dosage: 7 MILLIGRAM DAILY; 1DD 7.5MG
     Dates: start: 20181106
  10. UREUMPOEDER 30G [Concomitant]
     Dosage: 2 DOSES, 1 OP 14 EN 1 OP 15-11),
     Dates: start: 20181114, end: 20181115
  11. CIPROFLOXACINE [Suspect]
     Active Substance: CIPROFLOXACIN
     Indication: PRODUCT USED FOR UNKNOWN INDICATION
     Dosage: 2DD 750MG PER OS
     Route: 065
     Dates: start: 20181108
  12. CLONAZEPAM. [Concomitant]
     Active Substance: CLONAZEPAM
     Dosage: 0 MILLIGRAM DAILY; 1DD 0.5MG
  13. AMLODIPINE [Concomitant]
     Active Substance: AMLODIPINE BESYLATE
     Dosage: 5 MILLIGRAM DAILY; 1 DD 5 MG
  14. LEVODOPA/CARBIDOPA [Concomitant]
     Active Substance: CARBIDOPA\LEVODOPA
     Dosage: 2 DOSAGE FORMS DAILY; 1DD 2 TABLETTEN 100/25MG
  15. MIDAZOLAM [Concomitant]
     Active Substance: MIDAZOLAM HYDROCHLORIDE
     Dosage: 7 MILLIGRAM DAILY; 1DD 7.5MG
     Dates: start: 20181112
  16. ROSUVASTATINE [Suspect]
     Active Substance: ROSUVASTATIN
     Dosage: 1DD 2.5MG
     Route: 065
  17. FENTANYL IN SPUITENPOMP [Concomitant]
     Dosage: CA 50MCG/HOUR
     Dates: start: 20181116
  18. NADROPARINE 2850 IE [Concomitant]
     Dosage: 2850 IE
     Dates: start: 20181019
  19. UREUMPOEDER 30G [Concomitant]
     Dosage: 2 DOSES, 1 OP 14 EN 1 OP 15-11),
     Dates: start: 20181115
  20. LEVODOPA/CARBIDOPA 50/12.5MG [Concomitant]
     Dosage: 3DD 4 TABLETS

REACTIONS (2)
  - Stevens-Johnson syndrome [Unknown]
  - Toxic epidermal necrolysis [Recovered/Resolved]

NARRATIVE: CASE EVENT DATE: 20181116
